FAERS Safety Report 12009516 (Version 1)
Quarter: 2016Q1

REPORT INFORMATION
  Report Type: Spontaneous
  Country: US (occurrence: US)
  Receive Date: 20160205
  Receipt Date: 20160205
  Transmission Date: 20160526
  Serious: Yes (Death)
  Sender: FDA-Public Use
  Company Number: US-ROCHE-1706752

PATIENT
  Sex: Female

DRUGS (11)
  1. LETROZOLE. [Concomitant]
     Active Substance: LETROZOLE
  2. ATENOLOL. [Concomitant]
     Active Substance: ATENOLOL
  3. CEPHALEXIN. [Concomitant]
     Active Substance: CEPHALEXIN
  4. EMEND [Concomitant]
     Active Substance: APREPITANT
  5. ISOSORBID MONONITRAT [Concomitant]
  6. GABAPENTIN. [Concomitant]
     Active Substance: GABAPENTIN
  7. TEMAZEPAM. [Concomitant]
     Active Substance: TEMAZEPAM
  8. LOVASTATIN. [Concomitant]
     Active Substance: LOVASTATIN
  9. AVASTIN [Suspect]
     Active Substance: BEVACIZUMAB
     Indication: PRODUCT USED FOR UNKNOWN INDICATION
     Route: 042
     Dates: start: 20151027
  10. DEXAMETHASONE. [Concomitant]
     Active Substance: DEXAMETHASONE
  11. WARFARIN [Concomitant]
     Active Substance: WARFARIN

REACTIONS (1)
  - Death [Fatal]
